FAERS Safety Report 23929430 (Version 1)
Quarter: 2024Q2

REPORT INFORMATION
  Report Type: Spontaneous
  Country: BR (occurrence: BR)
  Receive Date: 20240601
  Receipt Date: 20240601
  Transmission Date: 20240716
  Serious: Yes (Other)
  Sender: FDA-Public Use
  Company Number: BR-JNJFOC-20240572121

PATIENT
  Age: 78 Year
  Sex: Male

DRUGS (1)
  1. IMBRUVICA [Suspect]
     Active Substance: IBRUTINIB
     Indication: B-cell small lymphocytic lymphoma
     Route: 048

REACTIONS (10)
  - Congenital aplasia [Unknown]
  - Cardiac disorder [Unknown]
  - Bronchiolitis [Unknown]
  - Splenic infarction [Unknown]
  - Splenomegaly [Recovering/Resolving]
  - Dengue fever [Unknown]
  - Pleural effusion [Unknown]
  - Lymphadenopathy [Unknown]
  - C-reactive protein increased [Unknown]
  - Polycythaemia [Unknown]
